FAERS Safety Report 6997439-7 (Version None)
Quarter: 2010Q3

REPORT INFORMATION
  Report Type: 
  Country: None (occurrence: None)
  Receive Date: 20100918
  Receipt Date: 20091016
  Transmission Date: 20110219
  Serious: No
  Sender: FDA-Public Use
  Company Number: US-WYE-H11729109

PATIENT
  Sex: Female
  Weight: 97.61 kg

DRUGS (7)
  1. PRISTIQ [Suspect]
     Indication: MAJOR DEPRESSION
     Route: 048
     Dates: start: 20091010, end: 20091015
  2. OXYCONTIN [Concomitant]
  3. ATENOLOL [Concomitant]
  4. SOMA [Concomitant]
  5. ZOLPIDEM [Concomitant]
  6. YAZ [Concomitant]
  7. NORCO [Concomitant]

REACTIONS (4)
  - DRUG WITHDRAWAL SYNDROME [None]
  - HYPOAESTHESIA ORAL [None]
  - PARAESTHESIA [None]
  - PARAESTHESIA ORAL [None]
